FAERS Safety Report 9689427 (Version 3)
Quarter: 2014Q2

REPORT INFORMATION
  Report Type: Spontaneous
  Country: US (occurrence: US)
  Receive Date: 20131114
  Receipt Date: 20140409
  Transmission Date: 20141212
  Serious: Yes (Hospitalization, Other)
  Sender: FDA-Public Use
  Company Number: US-B.I. PHARMACEUTICALS,INC./RIDGEFIELD-2013-BI-36410BP

PATIENT
  Age: 70 Year
  Sex: Male
  Weight: 77.11 kg

DRUGS (10)
  1. PRADAXA [Suspect]
     Indication: ATRIAL FIBRILLATION
     Route: 065
     Dates: start: 201108, end: 20111101
  2. ZOLPIDEM [Concomitant]
     Route: 065
  3. LOPRESSOR [Concomitant]
     Dosage: 200 MG
     Route: 048
  4. ALFURIA [Concomitant]
     Route: 065
  5. ASPIRIN [Concomitant]
     Dosage: 325 MG
     Route: 048
  6. OCUVITE [Concomitant]
     Route: 048
  7. ZESTRIL [Concomitant]
     Dosage: 5 MG
     Route: 048
  8. MAGNESIUM OXIDE [Concomitant]
     Dosage: 500 MG
     Route: 048
  9. LOVAZA [Concomitant]
     Dosage: 4 G
     Route: 048
  10. CRESTOR [Concomitant]
     Dosage: 10 MG
     Route: 048

REACTIONS (3)
  - Post procedural haemorrhage [Unknown]
  - Peritoneal haemorrhage [Unknown]
  - Anaemia [Unknown]
